FAERS Safety Report 7112656-3 (Version None)
Quarter: 2010Q4

REPORT INFORMATION
  Report Type: 
  Country: None (occurrence: None)
  Receive Date: 20101119
  Receipt Date: 20101111
  Transmission Date: 20110411
  Serious: Yes (Other)
  Sender: FDA-Public Use
  Company Number: US-JNJFOC-20101104617

PATIENT
  Sex: Female
  Weight: 60.33 kg

DRUGS (13)
  1. DOXIL [Suspect]
     Indication: OVARIAN CANCER
     Route: 042
  2. COUMADIN [Concomitant]
     Indication: ANTICOAGULANT THERAPY
     Dosage: EVERY OTHER DAY
     Route: 048
  3. COUMADIN [Concomitant]
     Dosage: EVERY OTHER DAY
     Route: 048
  4. SIMVASTATIN [Concomitant]
     Indication: BLOOD CHOLESTEROL
     Route: 048
  5. LISINOPRIL [Concomitant]
     Indication: HYPERTENSION
     Route: 048
  6. XANAX [Concomitant]
     Indication: ANXIETY
     Route: 048
  7. FOSAMAX [Concomitant]
     Indication: OSTEOPOROSIS PROPHYLAXIS
     Route: 048
  8. CALCIUM AND VITAMIN D [Concomitant]
     Indication: MEDICAL DIET
     Dosage: 500 MG-400 IU PER TABLET
     Route: 048
  9. VITAMIN D3 [Concomitant]
     Indication: MEDICAL DIET
     Route: 048
  10. LORATADINE [Concomitant]
     Indication: SEASONAL ALLERGY
     Route: 048
  11. PERI-COLACE [Concomitant]
     Indication: ABNORMAL FAECES
     Dosage: AS REQUIRED
     Route: 048
  12. SENOKOT [Concomitant]
     Indication: LAXATIVE SUPPORTIVE CARE
     Dosage: AS REQUIRED
     Route: 048
  13. NEULASTA [Concomitant]
     Indication: PROPHYLAXIS
     Route: 030

REACTIONS (1)
  - PLEURAL EFFUSION [None]
